FAERS Safety Report 9399442 (Version 1)
Quarter: 2013Q3

REPORT INFORMATION
  Report Type: Spontaneous
  Country: US (occurrence: US)
  Receive Date: 20130715
  Receipt Date: 20130715
  Transmission Date: 20140515
  Serious: No
  Sender: FDA-Public Use
  Company Number: US-TEVA-412661USA

PATIENT
  Age: 21 Year
  Sex: Female
  Weight: 46.31 kg

DRUGS (1)
  1. PARAGARD 380A [Suspect]
     Indication: CONTRACEPTION
     Dates: start: 20130131, end: 20130522

REACTIONS (3)
  - Vulvovaginal erythema [Recovered/Resolved]
  - Vulvovaginal pruritus [Recovered/Resolved]
  - Device expulsion [Recovered/Resolved]
